FAERS Safety Report 24066885 (Version 1)
Quarter: 2024Q3

REPORT INFORMATION
  Report Type: Spontaneous
  Country: US (occurrence: US)
  Receive Date: 20240709
  Receipt Date: 20240709
  Transmission Date: 20241016
  Serious: Yes (Other)
  Sender: MYLAN
  Company Number: US-MYLANLABS-2024M1063295

PATIENT
  Sex: Female

DRUGS (1)
  1. SERTRALINE [Suspect]
     Active Substance: SERTRALINE HYDROCHLORIDE
     Indication: Product used for unknown indication
     Dosage: UNK
     Route: 065

REACTIONS (7)
  - Hallucination [Unknown]
  - Abnormal dreams [Unknown]
  - Panic disorder [Unknown]
  - Tachycardia [Unknown]
  - Anxiety [Unknown]
  - Nausea [Unknown]
  - Decreased appetite [Unknown]
